FAERS Safety Report 10074411 (Version 1)
Quarter: 2014Q2

REPORT INFORMATION
  Report Type: Spontaneous
  Country: US (occurrence: US)
  Receive Date: 20140411
  Receipt Date: 20140411
  Transmission Date: 20141212
  Serious: No
  Sender: FDA-Public Use
  Company Number: US-SANOFI-AVENTIS-2013SA076353

PATIENT
  Sex: Female

DRUGS (2)
  1. ALLEGRA D [Suspect]
     Indication: HYPERSENSITIVITY
  2. ALLEGRA D [Suspect]
     Indication: SINUSITIS

REACTIONS (2)
  - Sleep disorder [Unknown]
  - Inappropriate schedule of drug administration [Unknown]
